FAERS Safety Report 10016798 (Version 2)
Quarter: 2014Q2

REPORT INFORMATION
  Report Type: Spontaneous
  Country: JP (occurrence: JP)
  Receive Date: 20140318
  Receipt Date: 20140404
  Transmission Date: 20141212
  Serious: Yes (Other)
  Sender: FDA-Public Use
  Company Number: PHHY2014JP029500

PATIENT
  Age: 32 Year
  Sex: Male
  Weight: 78 kg

DRUGS (3)
  1. THIOPENTAL [Suspect]
     Indication: GENERAL ANAESTHESIA
     Dosage: 100 MG, UNK
     Route: 042
  2. ROCURONIUM BROMIDE [Suspect]
     Indication: GENERAL ANAESTHESIA
     Dosage: 90 MG, UNK
     Route: 042
  3. DORMICUM//MIDAZOLAM [Suspect]
     Indication: GENERAL ANAESTHESIA
     Dosage: 5 MG
     Route: 042

REACTIONS (5)
  - Circulatory collapse [Recovered/Resolved]
  - Hypoxia [Recovered/Resolved]
  - Breath sounds absent [Recovered/Resolved]
  - Vascular compression [Recovered/Resolved]
  - Bronchial disorder [Recovered/Resolved]
